FAERS Safety Report 9508746 (Version 1)
Quarter: 2013Q1

REPORT INFORMATION
  Report Type: Spontaneous
  Country: US (occurrence: None)
  Receive Date: 20130305
  Receipt Date: 20130305
  Transmission Date: 20140127
  Serious: Yes (Other)
  Sender: FDA-Public Use
  Company Number: 163-21880-12081839

PATIENT
  Age: 80 Year
  Sex: Male

DRUGS (12)
  1. REVLIMID (LENALIDOMIDE) (15 MILLIGRAM, CAPSULES) [Suspect]
     Indication: PLASMA CELL MYELOMA
     Dosage: 15 MG, 1 IN 1 D, PO
     Route: 048
     Dates: start: 20120210
  2. AMBIEN (ZOLPIDEM TARTRATE) (UNKNOWN) [Concomitant]
  3. DEXAMETHASONE (DEXAMETHASONE) (UNKNOWN) [Concomitant]
  4. MIRTAZAPINE (MIRTAZAPINE) (UNKNOWN) [Concomitant]
  5. LORAZEPAM (LORAZEPAM) (UNKNOWN) [Concomitant]
  6. EXELON (REIVASTIGMINE TARTRATE) (POULTICE OR PATCH) [Concomitant]
  7. MILK OF MAGNESIA (MAGNESIUM HYDROXIDE) (UNKNOWN) [Concomitant]
  8. VITAMIN B12 (CYANOCOBALAMIN) (INJECTION) [Concomitant]
  9. LEXAPRO (ESCITALOPRAM OXALATE) (UNKNOWN) [Concomitant]
  10. SENNA (SENNA) (UNKNOWN) [Concomitant]
  11. PERCOCET (OXYCOCET) (UNKNOWN) [Concomitant]
  12. OMEPRAZOLE (OMEPRAZOLE) (UNKNOWN) [Concomitant]

REACTIONS (3)
  - Feeling hot [None]
  - Feeling cold [None]
  - Hyperhidrosis [None]
